FAERS Safety Report 7361171-0 (Version None)
Quarter: 2011Q1

REPORT INFORMATION
  Report Type: 
  Country: None (occurrence: None)
  Receive Date: 20110318
  Receipt Date: 20110311
  Transmission Date: 20110831
  Serious: Yes (Hospitalization)
  Sender: FDA-Public Use
  Company Number: NL-MEDIMMUNE-MEDI-0012892

PATIENT
  Sex: Male

DRUGS (3)
  1. SYNAGIS [Suspect]
     Route: 030
     Dates: start: 20110211, end: 20110211
  2. SYNAGIS [Suspect]
     Route: 030
     Dates: start: 20101027, end: 20101224
  3. SYNAGIS [Suspect]
     Route: 030
     Dates: start: 20110311, end: 20110311

REACTIONS (2)
  - RESPIRATORY TRACT INFECTION [None]
  - PYREXIA [None]
